FAERS Safety Report 5933436-8 (Version None)
Quarter: 2008Q4

REPORT INFORMATION
  Report Type: 
  Country: None (occurrence: None)
  Receive Date: 20081023
  Receipt Date: 20081007
  Transmission Date: 20090506
  Serious: Yes (Other)
  Sender: FDA-Public Use
  Company Number: B0542261A

PATIENT
  Age: 36 Year
  Sex: Male

DRUGS (7)
  1. FOSAMPRENAVIR (FORMULATION UNKNOWN) (GENERIC) (FOSAMPRENAVIR) [Suspect]
     Indication: HIV INFECTION
  2. RITONAVIR (FORMULATION UNKNOWN) (RITONAVIR) [Suspect]
     Indication: HIV INFECTION
  3. TENOFOVIR DISOPROXIL FUMARATE [Suspect]
     Indication: HIV INFECTION
  4. EMTRICITABINE (FORMULATION UNKNOWN) (EMTRICITABINE) [Suspect]
     Indication: HIV INFECTION
  5. STAVUDINE [Suspect]
     Indication: HIV INFECTION
  6. CO-TRIMOXAZOLE [Concomitant]
  7. AZITHROMYCIN [Concomitant]

REACTIONS (3)
  - ILEUS [None]
  - IMMUNE RECONSTITUTION SYNDROME [None]
  - MICROSPORIDIA INFECTION [None]
